FAERS Safety Report 6734103-3 (Version None)
Quarter: 2010Q2

REPORT INFORMATION
  Report Type: 
  Country: None (occurrence: None)
  Receive Date: 20100520
  Receipt Date: 20100514
  Transmission Date: 20101027
  Serious: Yes (Life-Threatening, Hospitalization, Other)
  Sender: FDA-Public Use
  Company Number: US-BAYER-201022737NA

PATIENT
  Sex: Female

DRUGS (1)
  1. AVELOX [Suspect]
     Indication: SINUSITIS BACTERIAL
     Dosage: TOTAL DAILY DOSE: 400 MG  UNIT DOSE: 400 MG
     Route: 048

REACTIONS (3)
  - ANAPHYLACTIC REACTION [None]
  - RASH [None]
  - SWELLING [None]
